FAERS Safety Report 5488642-6 (Version None)
Quarter: 2007Q4

REPORT INFORMATION
  Report Type: 
  Country: None (occurrence: None)
  Receive Date: 20071017
  Receipt Date: 20070420
  Transmission Date: 20080405
  Serious: No
  Sender: FDA-Public Use
  Company Number: A0641600A

PATIENT
  Sex: Female

DRUGS (2)
  1. CEFTIN [Suspect]
     Indication: UPPER RESPIRATORY TRACT INFECTION
     Dosage: 250MG TWICE PER DAY
     Route: 048
     Dates: start: 20070227
  2. NO CONCURRENT MEDICATION [Concomitant]

REACTIONS (5)
  - HYPERSENSITIVITY [None]
  - LIP SWELLING [None]
  - OEDEMA MOUTH [None]
  - PARAESTHESIA ORAL [None]
  - SWELLING FACE [None]
